FAERS Safety Report 8458588-X (Version None)
Quarter: 2012Q2

REPORT INFORMATION
  Report Type: 
  Country: None (occurrence: None)
  Receive Date: 20120622
  Receipt Date: 20120615
  Transmission Date: 20120825
  Serious: Yes (Other)
  Sender: FDA-Public Use
  Company Number: CA-UCBSA-057605

PATIENT
  Sex: Male

DRUGS (10)
  1. VIMPAT [Suspect]
     Indication: EPILEPSY
     Route: 048
     Dates: start: 20110701, end: 20120401
  2. AED [Concomitant]
  3. PRAVACHOL [Concomitant]
  4. ALFUZOSIN HCL [Concomitant]
  5. ASPIRIN [Concomitant]
  6. LAMOTRIGINE [Suspect]
  7. CLOBAZAM [Concomitant]
     Dosage: ONCE NIGHTLY
  8. THIAMINE [Concomitant]
  9. LAMICTAL [Concomitant]
  10. ZANTAC [Concomitant]

REACTIONS (1)
  - THROMBOCYTOPENIA [None]
